FAERS Safety Report 4654887-8 (Version None)
Quarter: 2005Q2

REPORT INFORMATION
  Report Type: 
  Country: None (occurrence: None)
  Receive Date: 20050504
  Receipt Date: 20050421
  Transmission Date: 20051028
  Serious: Yes (Hospitalization, Other)
  Sender: FDA-Public Use
  Company Number: HQWYE191722APR05

PATIENT
  Age: 48 Year
  Sex: Male

DRUGS (3)
  1. CORDARONE [Suspect]
     Indication: ARRHYTHMIA
     Dosage: 300 MG 1X PER 1 DAY, ORAL
     Route: 048
     Dates: start: 19820827, end: 19820827
  2. LIDOCAINE [Concomitant]
  3. PROCAINAMIDE [Concomitant]

REACTIONS (1)
  - THROMBOPHLEBITIS [None]
